FAERS Safety Report 5303548-0 (Version None)
Quarter: 2007Q2

REPORT INFORMATION
  Report Type: 
  Country: None (occurrence: None)
  Receive Date: 20070420
  Receipt Date: 20070416
  Transmission Date: 20071010
  Serious: Yes (Hospitalization)
  Sender: FDA-Public Use
  Company Number: AU-BOEHRINGER INGELHEIM PHARMACEUTICALS, INC.-2007-BP-05247AU

PATIENT
  Sex: Male
  Weight: 46 kg

DRUGS (13)
  1. APTIVUS/RITONAVIR CAPSULES [Suspect]
     Indication: HIV INFECTION
     Route: 048
     Dates: start: 20060518
  2. TRUVADA [Concomitant]
     Indication: HIV INFECTION
     Dosage: 300/200 MG
     Route: 048
  3. VIRAMUNE [Concomitant]
     Indication: HIV INFECTION
     Route: 048
  4. NORVIR [Concomitant]
     Indication: HIV INFECTION
     Route: 048
  5. BACTRIM (SULPHAMETHOXAZOLE/TRIMETHOPRIM) [Concomitant]
     Indication: PROPHYLAXIS
     Dosage: 800/160 MG
     Route: 048
  6. PANTOPRAZOLE SODIUM [Concomitant]
     Indication: GASTROOESOPHAGEAL REFLUX DISEASE
     Route: 048
  7. FOLIC ACID [Concomitant]
     Indication: MEDICAL DIET
     Route: 048
  8. MULTI-VITAMIN [Concomitant]
     Indication: MEDICAL DIET
     Route: 048
  9. METHADONE HCL [Concomitant]
     Indication: ANALGESIC EFFECT
     Route: 048
  10. SPIRIVA [Concomitant]
     Indication: CHRONIC OBSTRUCTIVE PULMONARY DISEASE
     Route: 055
  11. SALBUTAMOL [Concomitant]
     Indication: CHRONIC OBSTRUCTIVE PULMONARY DISEASE
     Route: 055
  12. IPRATROPIUM BROMIDE [Concomitant]
     Indication: CHRONIC OBSTRUCTIVE PULMONARY DISEASE
     Route: 055
  13. ZYRTEC [Concomitant]
     Indication: ALLERGY PROPHYLAXIS
     Route: 048

REACTIONS (1)
  - ADVERSE EVENT [None]
